FAERS Safety Report 8980695 (Version 1)
Quarter: 2012Q4

REPORT INFORMATION
  Report Type: 
  Country: DE (occurrence: DE)
  Receive Date: 20121221
  Receipt Date: 20121221
  Transmission Date: 20130627
  Serious: Yes (Life-Threatening, Hospitalization)
  Sender: FDA-Public Use
  Company Number: DE-EISAI INC-E7389-03385-SPO-DE

PATIENT
  Age: 73 Year
  Sex: Female

DRUGS (2)
  1. HALAVEN [Suspect]
     Indication: METASTATIC BREAST CANCER
     Route: 041
     Dates: end: 20121127
  2. ANTIHYPERTONICUM [Concomitant]
     Indication: HYPERTENSION
     Dosage: UNKNOWN
     Route: 065

REACTIONS (4)
  - Cerebrovascular accident [Unknown]
  - Intracardiac thrombus [Unknown]
  - Pulmonary embolism [Unknown]
  - Deep vein thrombosis [Unknown]
